FAERS Safety Report 9365798 (Version 1)
Quarter: 2013Q2

REPORT INFORMATION
  Report Type: Other
  Country: SE (occurrence: SE)
  Receive Date: 20130625
  Receipt Date: 20130625
  Transmission Date: 20140414
  Serious: Yes (Other)
  Sender: FDA-Public Use
  Company Number: SE-MPIJNJ-2013-04824

PATIENT
  Sex: 0

DRUGS (11)
  1. VELCADE [Suspect]
     Indication: PLASMA CELL MYELOMA
     Dosage: UNK
     Route: 065
     Dates: end: 20130103
  2. CYCLOPHOSPHAMIDE [Concomitant]
     Indication: PLASMA CELL MYELOMA
     Dosage: UNK
     Dates: end: 20130103
  3. DEXAMETHASONE [Concomitant]
     Indication: PLASMA CELL MYELOMA
     Dosage: UNK
     Dates: end: 20130103
  4. ZOMETA [Concomitant]
     Dosage: 4 MG/100ML
  5. PANODIL [Concomitant]
     Dosage: 500 MG, UNK
  6. LAXOBERAL [Concomitant]
     Dosage: 7.5 MG/ML
     Route: 048
  7. PENTACARINAT [Concomitant]
  8. IMOVANE [Concomitant]
     Dosage: 5 MG, UNK
  9. TRADOLAN [Concomitant]
     Dosage: 50 MG, UNK
  10. MOVICOL                            /01053601/ [Concomitant]
  11. ACICLOVIR [Concomitant]
     Dosage: 400 MG, UNK

REACTIONS (4)
  - Sensory disturbance [Not Recovered/Not Resolved]
  - Restless legs syndrome [Not Recovered/Not Resolved]
  - Hypoaesthesia [Not Recovered/Not Resolved]
  - Paraesthesia [Not Recovered/Not Resolved]
